FAERS Safety Report 17021312 (Version 6)
Quarter: 2020Q1

REPORT INFORMATION
  Report Type: Report from Study
  Country: JP (occurrence: JP)
  Receive Date: 20191112
  Receipt Date: 20200323
  Transmission Date: 20200409
  Serious: Yes (Hospitalization)
  Sender: FDA-Public Use
  Company Number: JP-EISAI MEDICAL RESEARCH-EC-2019-065011

PATIENT
  Age: 84 Year
  Sex: Male
  Weight: 58 kg

DRUGS (27)
  1. SENNOSIDE [Concomitant]
     Active Substance: SENNOSIDES
  2. MOHRUS [Concomitant]
     Active Substance: KETOPROFEN
  3. THYRADIN S [Concomitant]
     Active Substance: LEVOTHYROXINE SODIUM
  4. TEPRENONE [Concomitant]
     Active Substance: TEPRENONE
  5. AZUNOL GARGLE LIQUID [Concomitant]
  6. FEBURIC [Concomitant]
     Active Substance: FEBUXOSTAT
  7. FLUITRAN [Concomitant]
     Active Substance: TRICHLORMETHIAZIDE
  8. AMLODIPINE [Concomitant]
     Active Substance: AMLODIPINE BESYLATE
  9. LOXOPROFEN NA [Concomitant]
     Active Substance: LOXOPROFEN SODIUM
  10. AMITIZA [Concomitant]
     Active Substance: LUBIPROSTONE
  11. THYRADIN S [Concomitant]
     Active Substance: LEVOTHYROXINE SODIUM
  12. SODIUM PICOSULFATE HYDRATE [Concomitant]
     Active Substance: SODIUM PICOSULFATE
  13. TRAMAL OD [Concomitant]
     Active Substance: TRAMADOL
  14. SENNOSIDE [Concomitant]
     Active Substance: SENNOSIDES
  15. LENVATINIB [Suspect]
     Active Substance: LENVATINIB
     Indication: RENAL CELL CARCINOMA
     Route: 048
     Dates: start: 20190619, end: 20190709
  16. PEMBROLIZUMAB. [Suspect]
     Active Substance: PEMBROLIZUMAB
     Indication: RENAL CELL CARCINOMA
     Route: 041
     Dates: start: 20190619
  17. NEXIUM [Concomitant]
     Active Substance: ESOMEPRAZOLE MAGNESIUM
  18. FEBURIC [Concomitant]
     Active Substance: FEBUXOSTAT
  19. BUFFERIN [Concomitant]
     Active Substance: ASPIRIN
  20. HEPARINOID [Concomitant]
     Active Substance: CHONDROITIN SULFATE (BOVINE)
  21. LENVATINIB [Suspect]
     Active Substance: LENVATINIB
     Route: 048
     Dates: start: 20190731, end: 20190813
  22. LENVATINIB [Suspect]
     Active Substance: LENVATINIB
     Route: 048
     Dates: start: 20190821, end: 20191022
  23. NEXIUM [Concomitant]
     Active Substance: ESOMEPRAZOLE MAGNESIUM
  24. SODIUM [Concomitant]
     Active Substance: SODIUM
  25. MOHRUS TAPE [Concomitant]
     Active Substance: KETOPROFEN
  26. FUROSEMIDE. [Concomitant]
     Active Substance: FUROSEMIDE
  27. TRAMAL [Concomitant]
     Active Substance: TRAMADOL

REACTIONS (2)
  - Adrenal insufficiency [Recovering/Resolving]
  - Oedema [Not Recovered/Not Resolved]

NARRATIVE: CASE EVENT DATE: 20191001
